FAERS Safety Report 15941560 (Version 3)
Quarter: 2019Q1

REPORT INFORMATION
  Report Type: Spontaneous
  Country: US (occurrence: US)
  Receive Date: 20190208
  Receipt Date: 20190227
  Transmission Date: 20190417
  Serious: Yes (Other)
  Sender: FDA-Public Use
  Company Number: US-ASTRAZENECA-2018SF22050

PATIENT
  Age: 21402 Day
  Sex: Female

DRUGS (22)
  1. VICODIN [Concomitant]
     Active Substance: ACETAMINOPHEN\HYDROCODONE BITARTRATE
  2. MAGNESIUM OXIDE. [Concomitant]
     Active Substance: MAGNESIUM OXIDE
  3. OMEPRAZOLE. [Concomitant]
     Active Substance: OMEPRAZOLE
  4. SULFAMETHOXAZOLE [Concomitant]
     Active Substance: SULFAMETHOXAZOLE
  5. PRILOSEC [Suspect]
     Active Substance: OMEPRAZOLE MAGNESIUM
     Route: 048
  6. PRILOSEC [Suspect]
     Active Substance: OMEPRAZOLE MAGNESIUM
     Route: 048
     Dates: start: 20080101, end: 20150101
  7. REPAGLINIDE. [Concomitant]
     Active Substance: REPAGLINIDE
  8. POTASSIUM CHLORIDE. [Concomitant]
     Active Substance: POTASSIUM CHLORIDE
  9. LOPERAMIDE [Concomitant]
     Active Substance: LOPERAMIDE
  10. LANTUS [Concomitant]
     Active Substance: INSULIN GLARGINE
  11. METRONIDAZOLE. [Concomitant]
     Active Substance: METRONIDAZOLE
  12. CITALOPRAM [Concomitant]
     Active Substance: CITALOPRAM HYDROBROMIDE
  13. PROMETHAZINE [Concomitant]
     Active Substance: PROMETHAZINE\PROMETHAZINE HYDROCHLORIDE
  14. LYRICA [Concomitant]
     Active Substance: PREGABALIN
  15. HUMALOG [Concomitant]
     Active Substance: INSULIN LISPRO
  16. CEPHALEXIN. [Concomitant]
     Active Substance: CEPHALEXIN
  17. HYDROCODONE-ACETAMINOPHEN [Concomitant]
     Active Substance: ACETAMINOPHEN\HYDROCODONE
  18. GABAPENTIN. [Concomitant]
     Active Substance: GABAPENTIN
  19. BUPROPION HYDROCHLORIDE. [Concomitant]
     Active Substance: BUPROPION HYDROCHLORIDE
  20. OMEPRAZOLE. [Concomitant]
     Active Substance: OMEPRAZOLE
  21. WARFARIN SODIUM. [Concomitant]
     Active Substance: WARFARIN SODIUM
  22. CHOLESTYRAMINE. [Concomitant]
     Active Substance: CHOLESTYRAMINE

REACTIONS (5)
  - Chronic kidney disease [Unknown]
  - Renal injury [Unknown]
  - Renal failure [Unknown]
  - Tubulointerstitial nephritis [Unknown]
  - End stage renal disease [Unknown]

NARRATIVE: CASE EVENT DATE: 20150908
